FAERS Safety Report 8790496 (Version 3)
Quarter: 2012Q4

REPORT INFORMATION
  Report Type: Spontaneous
  Country: DE (occurrence: None)
  Receive Date: 20120904
  Receipt Date: 20121023
  Transmission Date: 20130627
  Serious: Yes (Other)
  Sender: FDA-Public Use
  Company Number: 2012033216

PATIENT
  Age: 61 Year
  Sex: Male

DRUGS (16)
  1. PRIVIGEN (IMMUNE GLOBULIN INTRAVENOUS (HUMAN) 10% LIQUID) [Suspect]
     Indication: SECONDARY IMMUNODEFICIENCY
     Dosage: Infusion rate 0.3 to 4.0ml/min
     Route: 042
     Dates: start: 20120516, end: 20120516
  2. PRIVIGEN (IMMUNE GLOBULIN INTRAVENOUS (HUMAN) 10% LIQUID) [Suspect]
     Indication: SECONDARY IMMUNODEFICIENCY
     Dosage: Infusion rate: 0.3 to 4.0 ml/min
     Route: 042
     Dates: start: 20120516, end: 20120611
  3. PRIVIGEN (IMMUNE GLOBULIN INTRAVENOUS (HUMAN) 10% LIQUID) [Suspect]
     Indication: SECONDARY IMMUNODEFICIENCY
     Dosage: Infusion rate: 0.3 to 4.0 mL/min
     Route: 042
     Dates: start: 20120518, end: 20120518
  4. PRIVIGEN (IMMUNE GLOBULIN INTRAVENOUS (HUMAN) 10% LIQUID) [Suspect]
     Indication: SECONDARY IMMUNODEFICIENCY
     Dosage: Infusion rate: 0.3 to 4.0 mL/min
     Route: 042
     Dates: start: 20120518, end: 20120518
  5. PRIVIGEN (IMMUNE GLOBULIN INTRAVENOUS (HUMAN) 10% LIQUID) [Suspect]
     Indication: SECONDARY IMMUNODEFICIENCY
     Dosage: Infusion rate: 0.3 to 4.0 mL/min
     Route: 042
     Dates: start: 20120521, end: 20120521
  6. PRIVIGEN (IMMUNE GLOBULIN INTRAVENOUS (HUMAN) 10% LIQUID) [Suspect]
     Indication: SECONDARY IMMUNODEFICIENCY
     Dosage: Infusion rate: 0.3 to 4.0 mL/min
     Route: 042
     Dates: start: 20120521, end: 20120521
  7. PRIVIGEN (IMMUNE GLOBULIN INTRAVENOUS (HUMAN) 10% LIQUID) [Suspect]
     Indication: SECONDARY IMMUNODEFICIENCY
     Dosage: Infusion rate: 0.3 to 4.0 mL/min
     Route: 042
     Dates: start: 20120611, end: 20120611
  8. PRIVIGEN (IMMUNE GLOBULIN INTRAVENOUS (HUMAN) 10% LIQUID) [Suspect]
     Indication: SECONDARY IMMUNODEFICIENCY
     Dosage: Infusion rate: 0.3 to 4.0 mL/min
     Route: 042
     Dates: start: 20120611, end: 20120611
  9. PRIVIGEN (IMMUNE GLOBULIN INTRAVENOUS (HUMAN) 10% LIQUID) [Suspect]
     Indication: SECONDARY IMMUNODEFICIENCY
     Dosage: Infusion rate: 0.3 to 4.0 mL/min
     Route: 042
     Dates: start: 20120609, end: 20120609
  10. PRIVIGEN (IMMUNE GLOBULIN INTRAVENOUS (HUMAN) 10% LIQUID) [Suspect]
     Indication: SECONDARY IMMUNODEFICIENCY
     Dosage: Infusion rate: 0.3 to 4.0 mL/min
     Route: 042
     Dates: start: 20120709, end: 20120709
  11. CITALOPRAM [Concomitant]
  12. ATACAND (CANDESARTAN CILEXETIL) [Concomitant]
  13. PANTOZOL [Concomitant]
  14. CYMBALTA (DULOXETINE HYDROCHLORIDE) [Concomitant]
  15. LYRICA (PREGABALIN) [Concomitant]
  16. RITUXIMAB [Concomitant]

REACTIONS (8)
  - Suspected transmission of an infectious agent via product [None]
  - Hepatitis B core antibody positive [None]
  - Cyanosis [None]
  - Chills [None]
  - Pyrexia [None]
  - Chest discomfort [None]
  - Inflammatory marker increased [None]
  - Procalcitonin increased [None]
